FAERS Safety Report 10614603 (Version 5)
Quarter: 2018Q3

REPORT INFORMATION
  Report Type: Report from Study
  Country: DE (occurrence: DE)
  Receive Date: 20141130
  Receipt Date: 20180822
  Transmission Date: 20181010
  Serious: Yes (Hospitalization)
  Sender: FDA-Public Use
  Company Number: PHHO2014DE015470

PATIENT
  Age: 75 Year
  Sex: Male
  Weight: 80.2 kg

DRUGS (2)
  1. PLACEBO [Suspect]
     Active Substance: UNSPECIFIED INGREDIENT
     Indication: PSORIATIC ARTHROPATHY
     Dosage: UNK
     Route: 058
     Dates: start: 20140915, end: 20141013
  2. METOPROLOL. [Suspect]
     Active Substance: METOPROLOL
     Indication: ATRIAL FLUTTER
     Dosage: 47.5 MG, UNK
     Route: 065
     Dates: start: 20141010

REACTIONS (3)
  - Atrioventricular block complete [Recovered/Resolved with Sequelae]
  - Arteriosclerosis coronary artery [Not Recovered/Not Resolved]
  - Atrial flutter [Recovered/Resolved with Sequelae]

NARRATIVE: CASE EVENT DATE: 20140915
